FAERS Safety Report 12181050 (Version 4)
Quarter: 2017Q4

REPORT INFORMATION
  Report Type: Report from Study
  Country: BR (occurrence: BR)
  Receive Date: 20160315
  Receipt Date: 20171130
  Transmission Date: 20180320
  Serious: Yes (Other)
  Sender: FDA-Public Use
  Company Number: BR-JNJFOC-20160312197

PATIENT
  Sex: Female
  Weight: 84 kg

DRUGS (4)
  1. SIMPONI [Suspect]
     Active Substance: GOLIMUMAB
     Indication: RHEUMATOID ARTHRITIS
     Route: 058
     Dates: start: 20151019
  2. SYNTHROID [Concomitant]
     Active Substance: LEVOTHYROXINE SODIUM
     Route: 065
  3. SIMPONI [Suspect]
     Active Substance: GOLIMUMAB
     Indication: RHEUMATOID ARTHRITIS
     Route: 058
  4. MACRODANTIN [Concomitant]
     Active Substance: NITROFURANTOIN
     Indication: RHEUMATOID ARTHRITIS
     Route: 065
     Dates: start: 20151019

REACTIONS (9)
  - Fatigue [Recovering/Resolving]
  - Infection [Unknown]
  - Sinusitis [Recovered/Resolved]
  - Urinary tract infection [Recovered/Resolved]
  - Red blood cell count decreased [Recovering/Resolving]
  - Therapeutic response decreased [Unknown]
  - Mood altered [Recovering/Resolving]
  - Ear infection [Unknown]
  - Pain [Recovering/Resolving]

NARRATIVE: CASE EVENT DATE: 2017
